FAERS Safety Report 6974642-3 (Version None)
Quarter: 2010Q3

REPORT INFORMATION
  Report Type: 
  Country: None (occurrence: None)
  Receive Date: 20100909
  Receipt Date: 20100909
  Transmission Date: 20110219
  Serious: Yes (Other)
  Sender: FDA-Public Use
  Company Number: None

PATIENT
  Age: 54 Year
  Sex: Female
  Weight: 73.6 kg

DRUGS (5)
  1. LISINOPRIL AND HYDROCHLOROTHIAZIDE [Suspect]
     Indication: HYPERTENSION
     Dosage: 20/12.5 LISINOPRIL-HCTZ QD ORAL: 047
     Route: 048
     Dates: start: 20100707, end: 20100805
  2. LISINOPRIL AND HYDROCHLOROTHIAZIDE [Suspect]
     Indication: HYPERTENSION
     Dosage: 20/12.5 LISINOPRIL-HCTZ QD ORAL: 047
     Route: 048
     Dates: start: 20100905, end: 20100907
  3. LEVOXYL [Concomitant]
  4. FEXOFENADINE HCL [Concomitant]
  5. SINGULAIR [Concomitant]

REACTIONS (7)
  - ABDOMINAL DISCOMFORT [None]
  - ABDOMINAL PAIN UPPER [None]
  - DYSGEUSIA [None]
  - GASTROOESOPHAGEAL REFLUX DISEASE [None]
  - OESOPHAGEAL PAIN [None]
  - PRODUCT SUBSTITUTION ISSUE [None]
  - SLEEP DISORDER [None]
